FAERS Safety Report 9943560 (Version 2)
Quarter: 2014Q1

REPORT INFORMATION
  Report Type: Report from Study
  Country: US (occurrence: US)
  Receive Date: 20140303
  Receipt Date: 20140303
  Transmission Date: 20141002
  Serious: No
  Sender: FDA-Public Use
  Company Number: US-ABBVIE-12P-163-0986849-00

PATIENT
  Age: 65 Year
  Sex: Female

DRUGS (1)
  1. HUMIRA [Suspect]
     Indication: CROHN^S DISEASE
     Route: 058
     Dates: start: 201208

REACTIONS (5)
  - Chills [Unknown]
  - Pyrexia [Unknown]
  - Oedema peripheral [Unknown]
  - Injection site pain [Unknown]
  - Diarrhoea [Unknown]
